FAERS Safety Report 19881392 (Version 1)
Quarter: 2021Q3

REPORT INFORMATION
  Report Type: Report from Study
  Country: DE (occurrence: DE)
  Receive Date: 20210925
  Receipt Date: 20210925
  Transmission Date: 20211014
  Serious: No
  Sender: FDA-Public Use
  Company Number: DE-TAKEDA-2020TUS049514

PATIENT
  Age: 48 Year
  Sex: Male

DRUGS (18)
  1. TEDUGLUTIDE [Suspect]
     Active Substance: TEDUGLUTIDE
     Indication: CRYPTITIS
     Dosage: 3.7 MILLIGRAM, QD, (0.05 MG/KG/7 TED DOSES PER WEEK)
     Route: 058
     Dates: start: 20170505
  2. TEDUGLUTIDE [Suspect]
     Active Substance: TEDUGLUTIDE
     Dosage: 5 MILLIGRAM, QD
     Route: 058
     Dates: start: 20150903, end: 20171016
  3. TEDUGLUTIDE [Suspect]
     Active Substance: TEDUGLUTIDE
     Indication: SHORT-BOWEL SYNDROME
     Dosage: 3.7 MILLIGRAM, QD, (0.05 MG/KG, 7 TED DOSES PER WEEK)
     Route: 058
     Dates: start: 20150903, end: 20170316
  4. TEDUGLUTIDE [Suspect]
     Active Substance: TEDUGLUTIDE
     Indication: CRYPTITIS
     Dosage: 3.7 MILLIGRAM, QD, (0.05 MG/KG/7 TED DOSES PER WEEK)
     Route: 058
     Dates: start: 20170505
  5. TEDUGLUTIDE [Suspect]
     Active Substance: TEDUGLUTIDE
     Dosage: 5 MILLIGRAM, QD
     Route: 058
     Dates: start: 20170505
  6. TEDUGLUTIDE [Suspect]
     Active Substance: TEDUGLUTIDE
     Dosage: 5 MILLIGRAM, QD
     Route: 058
     Dates: start: 20170505
  7. TEDUGLUTIDE [Suspect]
     Active Substance: TEDUGLUTIDE
     Indication: SHORT-BOWEL SYNDROME
     Dosage: 3.7 MILLIGRAM, QD, (0.05 MG/KG, 7 TED DOSES PER WEEK)
     Route: 058
     Dates: start: 20150903, end: 20170316
  8. TEDUGLUTIDE [Suspect]
     Active Substance: TEDUGLUTIDE
     Indication: CRYPTITIS
     Dosage: 3.7 MILLIGRAM, QD, (0.05 MG/KG/7 TED DOSES PER WEEK)
     Route: 058
     Dates: start: 20170505
  9. TEDUGLUTIDE [Suspect]
     Active Substance: TEDUGLUTIDE
     Dosage: 5 MILLIGRAM, QD
     Route: 058
     Dates: start: 20170505
  10. TEDUGLUTIDE [Suspect]
     Active Substance: TEDUGLUTIDE
     Indication: SHORT-BOWEL SYNDROME
     Dosage: 3.7 MILLIGRAM, QD, (0.05 MG/KG, 7 TED DOSES PER WEEK)
     Route: 058
     Dates: start: 20150903, end: 20170316
  11. TEDUGLUTIDE [Suspect]
     Active Substance: TEDUGLUTIDE
     Dosage: 5 MILLIGRAM, QD
     Route: 058
     Dates: start: 20170505
  12. LEVOGLUTAMIDE [Concomitant]
     Active Substance: GLUTAMINE
     Indication: VITAMIN B COMPLEX DEFICIENCY
     Dosage: 999 MILLIGRAM, QD
     Route: 048
     Dates: start: 20190618
  13. TEDUGLUTIDE [Suspect]
     Active Substance: TEDUGLUTIDE
     Indication: SHORT-BOWEL SYNDROME
     Dosage: 3.7 MILLIGRAM, QD, (0.05 MG/KG, 7 TED DOSES PER WEEK)
     Route: 058
     Dates: start: 20150903, end: 20170316
  14. TEDUGLUTIDE [Suspect]
     Active Substance: TEDUGLUTIDE
     Dosage: 5 MILLIGRAM, QD
     Route: 058
     Dates: start: 20150903, end: 20171016
  15. TEDUGLUTIDE [Suspect]
     Active Substance: TEDUGLUTIDE
     Indication: CRYPTITIS
     Dosage: 3.7 MILLIGRAM, QD, (0.05 MG/KG/7 TED DOSES PER WEEK)
     Route: 058
     Dates: start: 20170505
  16. TEDUGLUTIDE [Suspect]
     Active Substance: TEDUGLUTIDE
     Dosage: 5 MILLIGRAM, QD
     Route: 058
     Dates: start: 20150903, end: 20171016
  17. TEDUGLUTIDE [Suspect]
     Active Substance: TEDUGLUTIDE
     Dosage: 5 MILLIGRAM, QD
     Route: 058
     Dates: start: 20150903, end: 20171016
  18. DEXFOSFOSERINE. [Concomitant]
     Active Substance: DEXFOSFOSERINE
     Indication: VITAMIN B COMPLEX DEFICIENCY
     Dosage: 999 MILLIGRAM, QD
     Route: 048
     Dates: start: 20190618

REACTIONS (3)
  - Large intestine polyp [Recovered/Resolved]
  - Tooth infection [Recovered/Resolved]
  - Dysuria [Recovered/Resolved]

NARRATIVE: CASE EVENT DATE: 20200904
